FAERS Safety Report 4609554-3 (Version None)
Quarter: 2005Q1

REPORT INFORMATION
  Report Type: 
  Country: None (occurrence: None)
  Receive Date: 20050314
  Receipt Date: 20050314
  Transmission Date: 20050727
  Serious: Yes (Hospitalization)
  Sender: FDA-Public Use
  Company Number: None

PATIENT
  Age: 63 Year
  Sex: Male

DRUGS (6)
  1. ISOSORBIDE [Suspect]
     Indication: ANGINA PECTORIS
     Dosage: 10 MG TID
     Dates: start: 20040501
  2. METOPROLOL [Concomitant]
  3. ZOCOR [Concomitant]
  4. OXYBUTYNIN [Concomitant]
  5. BACLOFEN [Concomitant]
  6. HYDROCHLOROTHIAZIDE [Concomitant]

REACTIONS (1)
  - SYNCOPE [None]
